FAERS Safety Report 20477021 (Version 3)
Quarter: 2022Q2

REPORT INFORMATION
  Report Type: Spontaneous
  Country: FR (occurrence: FR)
  Receive Date: 20220215
  Receipt Date: 20220407
  Transmission Date: 20220721
  Serious: Yes (Death, Other)
  Sender: FDA-Public Use
  Company Number: FR-AMGEN-FRASP2022014730

PATIENT
  Sex: Male

DRUGS (1)
  1. BEVACIZUMAB [Suspect]
     Active Substance: BEVACIZUMAB
     Indication: Brain neoplasm
     Dosage: 15 MG/KG, EVERY 3 WEEKS
     Route: 065
     Dates: start: 202004

REACTIONS (5)
  - Intraventricular haemorrhage [Fatal]
  - Intracranial tumour haemorrhage [Unknown]
  - Hemiparesis [Unknown]
  - Nervous system disorder [Unknown]
  - Off label use [Unknown]

NARRATIVE: CASE EVENT DATE: 20201120
